FAERS Safety Report 7712636-0 (Version None)
Quarter: 2011Q3

REPORT INFORMATION
  Report Type: 
  Country: None (occurrence: None)
  Receive Date: 20110826
  Receipt Date: 20110817
  Transmission Date: 20111222
  Serious: Yes (Other)
  Sender: FDA-Public Use
  Company Number: CN-JNJFOC-20110809399

PATIENT
  Age: 47 Year
  Sex: Female

DRUGS (9)
  1. VENLAFAXINE HYDROCHLORIDE [Suspect]
     Indication: DIZZINESS
     Route: 048
     Dates: start: 20110725
  2. ALPRAZOLAM [Suspect]
     Indication: ASTHENIA
     Route: 048
     Dates: start: 20110725
  3. ALPRAZOLAM [Suspect]
     Indication: DIZZINESS
     Route: 048
     Dates: start: 20110725
  4. ALPRAZOLAM [Suspect]
     Indication: HEADACHE
     Route: 048
     Dates: start: 20110725
  5. RISPERDAL [Suspect]
     Indication: ASTHENIA
     Route: 048
     Dates: start: 20110725
  6. RISPERDAL [Suspect]
     Indication: HEADACHE
     Route: 048
     Dates: start: 20110725
  7. VENLAFAXINE HYDROCHLORIDE [Suspect]
     Indication: HEADACHE
     Route: 048
     Dates: start: 20110725
  8. RISPERDAL [Suspect]
     Indication: DIZZINESS
     Route: 048
     Dates: start: 20110725
  9. VENLAFAXINE HYDROCHLORIDE [Suspect]
     Indication: ASTHENIA
     Route: 048
     Dates: start: 20110725

REACTIONS (7)
  - DYSURIA [None]
  - DRY MOUTH [None]
  - TOOTH LOSS [None]
  - LACRIMATION INCREASED [None]
  - DYSPNOEA [None]
  - TOOTHACHE [None]
  - URINARY INCONTINENCE [None]
